FAERS Safety Report 19982920 (Version 1)
Quarter: 2021Q4

REPORT INFORMATION
  Report Type: Other
  Country: GB (occurrence: GB)
  Receive Date: 20211021
  Receipt Date: 20211021
  Transmission Date: 20220303
  Serious: No
  Sender: FDA-Public Use
  Company Number: None

PATIENT
  Age: 91 Year
  Sex: Male

DRUGS (5)
  1. MEMANTINE [Suspect]
     Active Substance: MEMANTINE
     Indication: Product used for unknown indication
     Dosage: 40 MILLIGRAM, QD, PATIENT WAS PRESCRIBED 20MG DAILY BUT TOOL 40MG BY MISTAKE.
     Route: 048
     Dates: start: 20210216, end: 20210317
  2. CO-AMILOFRUSE [Concomitant]
     Active Substance: AMILORIDE\FUROSEMIDE
     Indication: Product used for unknown indication
     Dosage: UNK, 2.5MG/20MG
     Route: 048
  3. ASPIRIN [Concomitant]
     Active Substance: ASPIRIN
     Indication: Product used for unknown indication
     Dosage: 75 MILLIGRAM
     Route: 048
  4. SIMVASTATIN [Concomitant]
     Active Substance: SIMVASTATIN
     Indication: Product used for unknown indication
     Dosage: 40 MILLIGRAM
     Route: 048
  5. METFORMIN [Concomitant]
     Active Substance: METFORMIN HYDROCHLORIDE
     Indication: Product used for unknown indication
     Dosage: 1 MILLIGRAM
     Route: 048

REACTIONS (2)
  - Stiff leg syndrome [Recovered/Resolved]
  - Wrong dose [Unknown]

NARRATIVE: CASE EVENT DATE: 20210216
